FAERS Safety Report 4425239-0 (Version None)
Quarter: 2004Q3

REPORT INFORMATION
  Report Type: 
  Country: None (occurrence: None)
  Receive Date: 20040813
  Receipt Date: 20040806
  Transmission Date: 20050211
  Serious: Yes (Disabling)
  Sender: FDA-Public Use
  Company Number: US-MERCK-0408USA00621

PATIENT
  Age: 79 Year
  Sex: Male

DRUGS (3)
  1. ATENOLOL [Concomitant]
     Route: 065
  2. PROSCAR [Suspect]
     Indication: BENIGN PROSTATIC HYPERPLASIA
     Route: 048
     Dates: start: 20040525, end: 20040729
  3. ZOCOR [Concomitant]
     Route: 048

REACTIONS (2)
  - VISION BLURRED [None]
  - VISUAL DISTURBANCE [None]
